FAERS Safety Report 13946551 (Version 1)
Quarter: 2017Q3

REPORT INFORMATION
  Report Type: Spontaneous
  Country: US (occurrence: US)
  Receive Date: 20170907
  Receipt Date: 20170907
  Transmission Date: 20171128
  Serious: No
  Sender: FDA-Public Use
  Company Number: US-BAYER-2017-166632

PATIENT
  Age: 46 Year
  Sex: Female
  Weight: 84 kg

DRUGS (2)
  1. MIDOL COMPLETE [Suspect]
     Active Substance: ACETAMINOPHEN\CAFFEINE\PYRILAMINE MALEATE
     Indication: PAIN
     Route: 048
  2. MIDOL EXTENDED RELIEF [Suspect]
     Active Substance: NAPROXEN SODIUM
     Indication: PAIN
     Route: 048

REACTIONS (1)
  - Drug ineffective [Unknown]
